FAERS Safety Report 10129983 (Version 1)
Quarter: 2014Q2

REPORT INFORMATION
  Report Type: Spontaneous
  Country: US (occurrence: None)
  Receive Date: 20140424
  Receipt Date: 20140424
  Transmission Date: 20141212
  Serious: Yes (Hospitalization)
  Sender: FDA-Public Use
  Company Number: None

PATIENT
  Age: 82 Year
  Sex: Male
  Weight: 67 kg

DRUGS (2)
  1. METOPROLOL [Suspect]
     Route: 048
     Dates: start: 20121030, end: 20140413
  2. SIMVASTATIN [Suspect]
     Indication: DIABETES MELLITUS
     Route: 048
     Dates: start: 20140407, end: 20140413

REACTIONS (3)
  - Dizziness [None]
  - Bradycardia [None]
  - Asthenia [None]
